FAERS Safety Report 18685993 (Version 2)
Quarter: 2021Q2

REPORT INFORMATION
  Report Type: Spontaneous
  Country: JP (occurrence: JP)
  Receive Date: 20201231
  Receipt Date: 20210520
  Transmission Date: 20210717
  Serious: Yes (Other)
  Sender: FDA-Public Use
  Company Number: JP-SA-2020SA373820

PATIENT
  Age: 17 Year
  Sex: Male
  Weight: 70 kg

DRUGS (2)
  1. DUPIXENT [Suspect]
     Active Substance: DUPILUMAB
     Indication: DERMATITIS ATOPIC
     Dosage: 300 MG, QOW
     Route: 058
  2. DUPIXENT [Suspect]
     Active Substance: DUPILUMAB
     Dosage: 600 MG, 1X
     Route: 058

REACTIONS (4)
  - Abdominal pain [Unknown]
  - Rectal tenesmus [Unknown]
  - Diarrhoea [Recovering/Resolving]
  - Colitis ulcerative [Unknown]
